FAERS Safety Report 13363894 (Version 3)
Quarter: 2017Q2

REPORT INFORMATION
  Report Type: Spontaneous
  Country: BR (occurrence: BR)
  Receive Date: 20170323
  Receipt Date: 20170509
  Transmission Date: 20170830
  Serious: Yes (Other)
  Sender: FDA-Public Use
  Company Number: BR-PFIZER INC-2017119869

PATIENT
  Age: 67 Year
  Sex: Female

DRUGS (2)
  1. XALATAN [Suspect]
     Active Substance: LATANOPROST
     Indication: GLAUCOMA
     Dosage: 3 UG (1 DROP IN EACH EYE)
     Route: 047
     Dates: start: 1997
  2. XALATAN [Suspect]
     Active Substance: LATANOPROST
     Dosage: 3 UG (1 DROP IN EACH EYE)
     Route: 047

REACTIONS (6)
  - Cataract [Unknown]
  - Eye pain [Unknown]
  - Foreign body sensation in eyes [Unknown]
  - Photophobia [Unknown]
  - Incorrect dose administered [Unknown]
  - Product dropper issue [Unknown]

NARRATIVE: CASE EVENT DATE: 201703
